FAERS Safety Report 19798266 (Version 1)
Quarter: 2021Q3

REPORT INFORMATION
  Report Type: Spontaneous
  Country: US (occurrence: US)
  Receive Date: 20210907
  Receipt Date: 20210907
  Transmission Date: 20211014
  Serious: Yes (Hospitalization)
  Sender: FDA-Public Use
  Company Number: None

PATIENT
  Age: 61 Year
  Sex: Female
  Weight: 82.8 kg

DRUGS (5)
  1. LOSARTAN. [Concomitant]
     Active Substance: LOSARTAN
     Dates: start: 20201106
  2. REGEN?COV [Suspect]
     Active Substance: CASIRIVIMAB\IMDEVIMAB
     Indication: COVID-19
     Dosage: ?          OTHER FREQUENCY:ONCE;?
     Route: 041
     Dates: start: 20210830, end: 20210830
  3. BUPROPION XL [Concomitant]
     Active Substance: BUPROPION
     Dates: start: 20201106
  4. MELOXICAM. [Concomitant]
     Active Substance: MELOXICAM
     Dates: start: 20210618
  5. CLONAZEPAM. [Concomitant]
     Active Substance: CLONAZEPAM
     Dates: start: 20200922

REACTIONS (6)
  - Heart rate decreased [None]
  - Vomiting [None]
  - Diarrhoea [None]
  - Hypoxia [None]
  - Nausea [None]
  - COVID-19 pneumonia [None]

NARRATIVE: CASE EVENT DATE: 20210831
